FAERS Safety Report 14070399 (Version 1)
Quarter: 2017Q4

REPORT INFORMATION
  Report Type: Spontaneous
  Country: CN (occurrence: CN)
  Receive Date: 20171010
  Receipt Date: 20171010
  Transmission Date: 20180321
  Serious: Yes (Other)
  Sender: FDA-Public Use
  Company Number: CN-BAYER-2017-188176

PATIENT
  Age: 54 Year
  Sex: Male
  Weight: 78.5 kg

DRUGS (3)
  1. ENDOXAN [Suspect]
     Active Substance: CYCLOPHOSPHAMIDE
     Indication: OPTIC ATROPHY
     Dosage: 0.4 G, OW
     Route: 042
     Dates: start: 20170315, end: 20170315
  2. AVELOX [Suspect]
     Active Substance: MOXIFLOXACIN HYDROCHLORIDE
     Indication: LUNG INFECTION
     Dosage: 0.4 G, QD
     Route: 048
     Dates: start: 20170301, end: 20170310
  3. THALIDOMIDE [Concomitant]
     Active Substance: THALIDOMIDE
     Indication: OPTIC ATROPHY
     Dosage: 25 MG, QD
     Route: 048
     Dates: start: 20170307, end: 20170315

REACTIONS (4)
  - Ammonia increased [Unknown]
  - Hepatic function abnormal [Unknown]
  - Coagulopathy [Unknown]
  - Blood bilirubin increased [Unknown]

NARRATIVE: CASE EVENT DATE: 20170318
